FAERS Safety Report 6389985-4 (Version None)
Quarter: 2009Q4

REPORT INFORMATION
  Report Type: 
  Country: None (occurrence: None)
  Receive Date: 20091006
  Receipt Date: 20090924
  Transmission Date: 20100525
  Serious: Yes (Death)
  Sender: FDA-Public Use
  Company Number: JP-ROCHE-660049

PATIENT
  Age: 66 Year
  Sex: Female

DRUGS (1)
  1. TAMIFLU [Suspect]
     Dosage: DOSE FORM: ORAL FORMULATION NOS
     Route: 048
     Dates: start: 20090912

REACTIONS (1)
  - MYOCARDITIS [None]
